FAERS Safety Report 9563480 (Version 1)
Quarter: 2013Q3

REPORT INFORMATION
  Report Type: Spontaneous
  Country: None (occurrence: None)
  Receive Date: 20130926
  Receipt Date: 20130926
  Transmission Date: 20140515
  Serious: Yes (Hospitalization, Other)
  Sender: FDA-Public Use
  Company Number: 2013/186

PATIENT
  Age: 89 Year
  Sex: Male

DRUGS (4)
  1. CEPHALEXIN [Suspect]
     Indication: LOWER RESPIRATORY TRACT INFECTION
     Route: 048
     Dates: start: 20130604, end: 20130611
  2. SALMETEROL XINAFOATE, SALMETEROL XINAFOATE MICRONISED (SEREVENT) [Concomitant]
  3. TEMAZEPAM (NO PREFERENTIAL NAME) 20 MG [Concomitant]
  4. TIOTROPIUM BROMIDE (NO PREFERENTIAL NAME) 18 MCG OD [Concomitant]

REACTIONS (4)
  - Treatment failure [None]
  - Chills [None]
  - Cough [None]
  - Hyperhidrosis [None]
